FAERS Safety Report 5450299-8 (Version None)
Quarter: 2007Q3

REPORT INFORMATION
  Report Type: 
  Country: None (occurrence: None)
  Receive Date: 20070912
  Receipt Date: 20070903
  Transmission Date: 20080115
  Serious: Yes (Hospitalization)
  Sender: FDA-Public Use
  Company Number: DE-AMGEN-US238447

PATIENT
  Sex: Male

DRUGS (3)
  1. ENBREL [Suspect]
     Indication: ANKYLOSING SPONDYLITIS
     Dosage: 50 MG EVERY 8 - 11 DAYS
     Route: 058
     Dates: start: 20040101, end: 20070101
  2. ENBREL [Suspect]
     Indication: PSORIASIS
  3. DICLOFENAC [Concomitant]
     Dosage: 75 MG WHEN NEEDED
     Route: 065

REACTIONS (1)
  - FACIAL PALSY [None]
